FAERS Safety Report 9171490 (Version 3)
Quarter: 2013Q3

REPORT INFORMATION
  Report Type: Spontaneous
  Country: US (occurrence: US)
  Receive Date: 20130319
  Receipt Date: 20130828
  Transmission Date: 20140515
  Serious: Yes (Death, Hospitalization)
  Sender: FDA-Public Use
  Company Number: US-ELI_LILLY_AND_COMPANY-US201303002931

PATIENT
  Age: 70 Year
  Sex: Female

DRUGS (14)
  1. FORTEO [Suspect]
     Indication: BONE LOSS
     Dosage: 20 UG, QD
  2. HUMALOG LISPRO [Suspect]
  3. SYMBICORT [Concomitant]
  4. METFORMIN [Concomitant]
  5. LANTUS [Concomitant]
  6. OMEPRAZOLE [Concomitant]
  7. ARICEPT [Concomitant]
  8. DESYREL [Concomitant]
  9. CYCLOBENZAPRINE [Concomitant]
  10. CLONIDINE [Concomitant]
  11. OXYBUTYNIN [Concomitant]
  12. LEVOTHYROXINE [Concomitant]
  13. FUROSEMIDE [Concomitant]
  14. CITALOPRAM [Concomitant]

REACTIONS (2)
  - Hypoglycaemia [Recovered/Resolved]
  - Cardiac arrest [Fatal]
